FAERS Safety Report 7138437-2 (Version None)
Quarter: 2010Q4

REPORT INFORMATION
  Report Type: 
  Country: None (occurrence: None)
  Receive Date: 20101206
  Receipt Date: 20101123
  Transmission Date: 20110411
  Serious: Yes (Hospitalization, Other)
  Sender: FDA-Public Use
  Company Number: PHHY2010DE80573

PATIENT
  Sex: Male
  Weight: 90 kg

DRUGS (17)
  1. LMF237 LMF237+ [Suspect]
     Indication: DIABETES MELLITUS
     Dosage: 1 DF (850/50 MG), BID
     Dates: start: 20090105
  2. LMF237 LMF237+ [Suspect]
     Dosage: 1 DF (1000/50 MG), BID
  3. RASILEZ [Suspect]
     Dosage: 1 DF (150 MG), QD
  4. RASILEZ [Suspect]
     Dosage: 1 DF (300 MG), QD
  5. DIOVAN [Suspect]
     Dosage: 1DF, BID
  6. EXFORGE [Suspect]
     Dosage: 1 DF, QD
  7. NEBIVOLOL [Concomitant]
     Dosage: 1 DF, BID
  8. OMEPRAZOLE [Concomitant]
     Dosage: 1 DF, QD
  9. SIMVASTATIN [Concomitant]
     Dosage: 1 DF, QD
  10. BERODUAL [Concomitant]
     Dosage: PRN
  11. NAC DIAGNOSTIC REAGENT [Concomitant]
     Dosage: 1 DF, QD
  12. METFORMIN [Concomitant]
     Dosage: 1 DF, QD
  13. ATROVENT [Concomitant]
     Dosage: PRN
  14. HYDROCHLOROTHIAZIDE [Concomitant]
     Dosage: 1 DF (12.5 (UNSPECIFIED UNITS)), QD
  15. AMLODIPINE [Concomitant]
     Dosage: 1 DF, QD
  16. PANTOPRAZOLE [Concomitant]
     Dosage: 1 DF, QD
  17. TOREM [Concomitant]
     Dosage: 1 DF, QD

REACTIONS (11)
  - BLOOD GLUCOSE INCREASED [None]
  - CHEST X-RAY ABNORMAL [None]
  - DIZZINESS [None]
  - GASTROENTERITIS [None]
  - GLYCOSYLATED HAEMOGLOBIN INCREASED [None]
  - HEADACHE [None]
  - HYPERTENSIVE CRISIS [None]
  - LEFT VENTRICULAR DYSFUNCTION [None]
  - LEFT VENTRICULAR HYPERTROPHY [None]
  - RALES [None]
  - VENTRICULAR EXTRASYSTOLES [None]
